FAERS Safety Report 13210965 (Version 1)
Quarter: 2017Q1

REPORT INFORMATION
  Report Type: Spontaneous
  Country: PL (occurrence: PL)
  Receive Date: 20170210
  Receipt Date: 20170210
  Transmission Date: 20170428
  Serious: Yes (Hospitalization)
  Sender: FDA-Public Use
  Company Number: PL-ABBVIE-17K-129-1863389-00

PATIENT
  Age: 45 Year
  Sex: Male

DRUGS (1)
  1. HUMIRA [Suspect]
     Active Substance: ADALIMUMAB
     Indication: PRODUCT USED FOR UNKNOWN INDICATION
     Route: 058

REACTIONS (5)
  - Tinnitus [Recovered/Resolved]
  - Injection site rash [Recovered/Resolved]
  - Rash generalised [Recovered/Resolved]
  - Swelling [Recovered/Resolved]
  - Injection site swelling [Recovered/Resolved]
